FAERS Safety Report 5430799-7 (Version None)
Quarter: 2007Q3

REPORT INFORMATION
  Report Type: 
  Country: None (occurrence: None)
  Receive Date: 20070830
  Receipt Date: 20061128
  Transmission Date: 20080115
  Serious: No
  Sender: FDA-Public Use
  Company Number: A0629014A

PATIENT
  Sex: Male

DRUGS (6)
  1. WELLBUTRIN XL [Suspect]
     Indication: DEPRESSION
     Dosage: 150MG PER DAY
     Route: 048
     Dates: start: 20061120
  2. HYTRIN [Concomitant]
  3. PROSCAR [Concomitant]
  4. LISINOPRIL [Concomitant]
  5. RESTORIL [Concomitant]
  6. XANAX [Concomitant]

REACTIONS (4)
  - CONSTIPATION [None]
  - DRY EYE [None]
  - FATIGUE [None]
  - HEADACHE [None]
